FAERS Safety Report 9831819 (Version 1)
Quarter: 2014Q1

REPORT INFORMATION
  Report Type: Spontaneous
  Country: GR (occurrence: GR)
  Receive Date: 20140121
  Receipt Date: 20140121
  Transmission Date: 20141002
  Serious: Yes (Hospitalization)
  Sender: FDA-Public Use
  Company Number: GR-JNJFOC-20140106941

PATIENT
  Age: 42 Year
  Sex: Male

DRUGS (3)
  1. REMICADE [Suspect]
     Indication: ARTHRALGIA
     Dosage: 100MG/VIAL
     Route: 042
     Dates: start: 2006
  2. REMICADE [Suspect]
     Indication: COLITIS ULCERATIVE
     Dosage: 100MG/VIAL
     Route: 042
     Dates: start: 2006
  3. AZATHIOPRINE [Concomitant]
     Route: 065
     Dates: start: 201312

REACTIONS (2)
  - Pulmonary embolism [Recovering/Resolving]
  - Drug ineffective [Unknown]
